FAERS Safety Report 15023416 (Version 2)
Quarter: 2018Q3

REPORT INFORMATION
  Report Type: Report from Study
  Country: BR (occurrence: BR)
  Receive Date: 20180618
  Receipt Date: 20180828
  Transmission Date: 20181010
  Serious: Yes (Other)
  Sender: FDA-Public Use
  Company Number: PHHY2017BR093304

PATIENT
  Sex: Female
  Weight: 53 kg

DRUGS (7)
  1. VITAMIN D [Concomitant]
     Active Substance: CHOLECALCIFEROL
     Indication: PRODUCT USED FOR UNKNOWN INDICATION
     Dosage: UNK
     Route: 065
  2. ACLASTA [Suspect]
     Active Substance: ZOLEDRONIC ACID
     Indication: OSTEOPOROSIS
     Dosage: 1 DF, Q12MO
     Route: 042
     Dates: start: 2013
  3. PURAN [Concomitant]
     Active Substance: LEVOTHYROXINE SODIUM
     Indication: HORMONE REPLACEMENT THERAPY
     Dosage: 1 DF, QD (MORNING)
     Route: 048
  4. CALCIUM [Concomitant]
     Active Substance: CALCIUM
     Indication: PRODUCT USED FOR UNKNOWN INDICATION
     Dosage: UNK
     Route: 065
  5. CALCITRIOL. [Concomitant]
     Active Substance: CALCITRIOL
     Indication: PRODUCT USED FOR UNKNOWN INDICATION
     Dosage: 1 DF, QD (1 YEAR AND A HALF)
     Route: 048
  6. ADDERA D3 [Concomitant]
     Active Substance: CHOLECALCIFEROL
     Indication: OSTEOPOROSIS
     Dosage: 5 DF, QD
     Route: 048
  7. FEMARA [Concomitant]
     Active Substance: LETROZOLE
     Indication: BREAST CANCER
     Dosage: 1 DF, QD (4 YEARS AND 8 MONTHS AGO)
     Route: 048

REACTIONS (5)
  - Poor venous access [Unknown]
  - Nephrolithiasis [Not Recovered/Not Resolved]
  - Osteoporosis [Unknown]
  - Condition aggravated [Unknown]
  - Blood urea increased [Not Recovered/Not Resolved]
